FAERS Safety Report 23417790 (Version 1)
Quarter: 2024Q1

REPORT INFORMATION
  Report Type: Report from Study
  Country: CA (occurrence: CA)
  Receive Date: 20240118
  Receipt Date: 20240118
  Transmission Date: 20240410
  Serious: Yes (Hospitalization)
  Sender: FDA-Public Use
  Company Number: CA-Vifor (International) Inc.-VIT-2023-09730

PATIENT
  Age: 86 Year
  Sex: Male

DRUGS (2)
  1. VELTASSA [Suspect]
     Active Substance: PATIROMER
     Indication: Product used for unknown indication
     Dosage: EVERY MONDAY WEDNESDAY AND FRIDAY
     Route: 048
  2. VELTASSA [Suspect]
     Active Substance: PATIROMER
     Dates: start: 20230307

REACTIONS (2)
  - Knee operation [Recovering/Resolving]
  - Off label use [Unknown]
